FAERS Safety Report 15942185 (Version 2)
Quarter: 2019Q1

REPORT INFORMATION
  Report Type: Spontaneous
  Country: US (occurrence: US)
  Receive Date: 20190209
  Receipt Date: 20190308
  Transmission Date: 20190417
  Serious: Yes (Hospitalization)
  Sender: FDA-Public Use
  Company Number: US-UNITED THERAPEUTICS-UNT-2019-002212

PATIENT
  Sex: Male
  Weight: 78.46 kg

DRUGS (1)
  1. REMODULIN [Suspect]
     Active Substance: TREPROSTINIL
     Indication: PULMONARY ARTERIAL HYPERTENSION
     Dosage: 0.014 ?G/KG, CONTINUING
     Route: 058
     Dates: start: 20181105

REACTIONS (4)
  - Syncope [Unknown]
  - Fall [Recovered/Resolved with Sequelae]
  - Lower limb fracture [Unknown]
  - Intentional dose omission [Unknown]
